FAERS Safety Report 13057821 (Version 1)
Quarter: 2016Q4

REPORT INFORMATION
  Report Type: Spontaneous
  Country: JP (occurrence: JP)
  Receive Date: 20161223
  Receipt Date: 20161223
  Transmission Date: 20170207
  Serious: Yes (Hospitalization)
  Sender: FDA-Public Use
  Company Number: JP-ORION CORPORATION ORION PHARMA-ENT 2016-0243

PATIENT
  Age: 62 Year

DRUGS (15)
  1. STALEVO [Suspect]
     Active Substance: CARBIDOPA\ENTACAPONE\LEVODOPA
     Route: 048
  2. LEVODOPA [Concomitant]
     Active Substance: LEVODOPA
     Indication: TREMOR
     Route: 065
  3. PRAMIPEXOLE ACCORD [Concomitant]
     Indication: TREMOR
     Route: 065
  4. STALEVO [Suspect]
     Active Substance: CARBIDOPA\ENTACAPONE\LEVODOPA
     Dosage: 06:00, 09:00, 12:00
     Route: 048
  5. SYMMETREL [Suspect]
     Active Substance: AMANTADINE HYDROCHLORIDE
     Route: 048
  6. TRERIEF [Concomitant]
     Active Substance: ZONISAMIDE
     Route: 065
  7. STALEVO [Suspect]
     Active Substance: CARBIDOPA\ENTACAPONE\LEVODOPA
     Route: 048
  8. SELEGILINE [Concomitant]
     Active Substance: SELEGILINE
     Indication: DYSKINESIA
     Route: 065
  9. BI SIFROL [Concomitant]
     Active Substance: PRAMIPEXOLE
     Route: 065
  10. SYMMETREL [Suspect]
     Active Substance: AMANTADINE HYDROCHLORIDE
     Indication: DYSKINESIA
     Route: 048
  11. ZONISAMIDE. [Concomitant]
     Active Substance: ZONISAMIDE
     Indication: DRUG EFFECT DECREASED
  12. STALEVO [Suspect]
     Active Substance: CARBIDOPA\ENTACAPONE\LEVODOPA
     Indication: DRUG EFFECT DECREASED
     Dosage: 100 MG BREAKFAST, LUNCH AND DINNER; 50 MG AT 14:00
     Route: 048
  13. STALEVO [Suspect]
     Active Substance: CARBIDOPA\ENTACAPONE\LEVODOPA
     Dosage: 100 MG AND 50 MG UNTIL 15:00
     Route: 048
  14. STALEVO [Suspect]
     Active Substance: CARBIDOPA\ENTACAPONE\LEVODOPA
     Dosage: 06:00, 09:00, 12:00, 15:00, 18:00 AND 21:00
     Route: 048
  15. COMTAN [Suspect]
     Active Substance: ENTACAPONE
     Indication: DRUG EFFECT DECREASED
     Dosage: (6:00, 9:00, 12:00)
     Route: 048

REACTIONS (5)
  - Hallucination, auditory [Recovering/Resolving]
  - Oedema peripheral [Unknown]
  - Dyskinesia [Unknown]
  - Hallucination, visual [Recovering/Resolving]
  - Drug effect decreased [Unknown]
